FAERS Safety Report 4448529-4 (Version None)
Quarter: 2004Q3

REPORT INFORMATION
  Report Type: 
  Country: None (occurrence: None)
  Receive Date: 20040909
  Receipt Date: 20040823
  Transmission Date: 20050211
  Serious: Yes (Hospitalization)
  Sender: FDA-Public Use
  Company Number: EWC040840374

PATIENT
  Age: 48 Year
  Sex: Male
  Weight: 67 kg

DRUGS (18)
  1. ALIMTA [Suspect]
     Indication: GASTRIC CANCER
     Dosage: 66.5 MG
     Dates: start: 20040607
  2. CISPLATIN [Suspect]
     Indication: GASTRIC CANCER
     Dosage: 100.13 MG
     Dates: start: 20040617
  3. CIMETIDINE [Concomitant]
  4. OMEPRAZOLE [Concomitant]
  5. ZOLPIDEM TARTRATE [Concomitant]
  6. PIPRINHYDRINATE [Concomitant]
  7. METOCLOPRAMIDE [Concomitant]
  8. VITAMIN B-12 [Concomitant]
  9. FOLIC ACID [Concomitant]
  10. OXYCONTIN [Concomitant]
  11. SIMETHICONE [Concomitant]
  12. MAGNESIUM OXIDE [Concomitant]
  13. DEXAMETHASONE [Concomitant]
  14. DOLASETRON [Concomitant]
  15. LORAZEPAM [Concomitant]
  16. FUROSEMIDE [Concomitant]
  17. MEGESTROL ACETATE [Concomitant]
  18. AMINO ACID INJ [Concomitant]

REACTIONS (2)
  - ANOREXIA [None]
  - STOMATITIS [None]
